FAERS Safety Report 21119133 (Version 1)
Quarter: 2022Q3

REPORT INFORMATION
  Report Type: Spontaneous
  Country: US (occurrence: None)
  Receive Date: 20220721
  Receipt Date: 20220721
  Transmission Date: 20221027
  Serious: Yes (Hospitalization)
  Sender: FDA-Public Use
  Company Number: None

PATIENT
  Sex: Male

DRUGS (4)
  1. OCREVUS [Suspect]
     Active Substance: OCRELIZUMAB
     Indication: Multiple sclerosis
     Dosage: OTHER QUANTITY : 300/10 MG/ML;?FREQUENCY : AS DIRECTED;?INFUSE 20 ML (600 MG TOTAL) INTRAVENOUSLY EV
     Route: 042
     Dates: start: 20211217
  2. BENZONATATE [Concomitant]
     Active Substance: BENZONATATE
  3. LIDOCAINE SOL 2% [Concomitant]
  4. OCREVUS [Concomitant]
     Active Substance: OCRELIZUMAB

REACTIONS (1)
  - Febrile neutropenia [None]
